FAERS Safety Report 6086242-0 (Version None)
Quarter: 2009Q1

REPORT INFORMATION
  Report Type: 
  Country: None (occurrence: None)
  Receive Date: 20090220
  Receipt Date: 20071204
  Transmission Date: 20090719
  Serious: No
  Sender: FDA-Public Use
  Company Number: US-ASTRAZENECA-2007UW27451

PATIENT
  Sex: Male

DRUGS (3)
  1. FELODIPINE [Suspect]
  2. LISINOPRIL [Suspect]
  3. LOSARTAN [Concomitant]

REACTIONS (1)
  - EYE DISORDER [None]
